FAERS Safety Report 4772271-3 (Version None)
Quarter: 2005Q3

REPORT INFORMATION
  Report Type: 
  Country: None (occurrence: None)
  Receive Date: 20050919
  Receipt Date: 20050513
  Transmission Date: 20060218
  Serious: No
  Sender: FDA-Public Use
  Company Number: US-BRISTOL-MYERS SQUIBB COMPANY-12969069

PATIENT
  Age: 48 Year
  Sex: Male
  Weight: 79 kg

DRUGS (4)
  1. DEFINITY [Suspect]
     Indication: CHEST PAIN
     Route: 040
     Dates: start: 20050513, end: 20050513
  2. METOPROLOL [Concomitant]
  3. COZAAR [Concomitant]
  4. LIPITOR [Concomitant]

REACTIONS (1)
  - FLANK PAIN [None]
